FAERS Safety Report 15514624 (Version 2)
Quarter: 2018Q4

REPORT INFORMATION
  Report Type: Report from Study
  Country: US (occurrence: US)
  Receive Date: 20181016
  Receipt Date: 20181214
  Transmission Date: 20190205
  Serious: Yes (Other)
  Sender: FDA-Public Use
  Company Number: US-BEH-2018095664

PATIENT
  Age: 19 Year
  Sex: Female

DRUGS (2)
  1. HIZENTRA [Suspect]
     Active Substance: HUMAN IMMUNOGLOBULIN G
     Dosage: 8 G, QW
     Route: 058
     Dates: start: 20181009, end: 20181009
  2. HIZENTRA [Suspect]
     Active Substance: HUMAN IMMUNOGLOBULIN G
     Indication: PRIMARY IMMUNODEFICIENCY SYNDROME
     Dosage: 8 G, QW
     Route: 058
     Dates: start: 20181004

REACTIONS (9)
  - Tinnitus [Recovered/Resolved]
  - Hypotension [Recovered/Resolved]
  - Heart rate decreased [Recovered/Resolved]
  - Syncope [Recovered/Resolved]
  - Aphasia [Recovered/Resolved]
  - Asthenia [Recovered/Resolved]
  - Visual impairment [Recovered/Resolved]
  - Fatigue [Recovered/Resolved]
  - Nausea [Recovered/Resolved]

NARRATIVE: CASE EVENT DATE: 20181009
